FAERS Safety Report 24579594 (Version 1)
Quarter: 2024Q4

REPORT INFORMATION
  Report Type: Spontaneous
  Country: US (occurrence: US)
  Receive Date: 20241105
  Receipt Date: 20241105
  Transmission Date: 20250115
  Serious: No
  Sender: IMMUNOCORE
  Company Number: US-IMMUNOCORE, LTD-2024-IMC-002924

PATIENT
  Age: 67 Year
  Sex: Male

DRUGS (1)
  1. KIMMTRAK [Suspect]
     Active Substance: TEBENTAFUSP-TEBN
     Indication: Product used for unknown indication
     Dosage: 30 MICROGRAM ONCE
     Route: 042
     Dates: start: 20240430

REACTIONS (6)
  - Hypoxia [Unknown]
  - Cytokine release syndrome [Unknown]
  - Headache [Unknown]
  - Nausea [Unknown]
  - Chills [Unknown]
  - Pyrexia [Unknown]

NARRATIVE: CASE EVENT DATE: 20240430
